FAERS Safety Report 17020381 (Version 1)
Quarter: 2019Q4

REPORT INFORMATION
  Report Type: Spontaneous
  Country: US (occurrence: US)
  Receive Date: 20191007
  Receipt Date: 20191007
  Transmission Date: 20200122
  Serious: Yes (Other)
  Sender: FDA-Public Use
  Company Number: None

PATIENT
  Age: 61 Year
  Sex: Male

DRUGS (8)
  1. CLOBETASOL [Concomitant]
     Active Substance: CLOBETASOL
  2. WARFARIN [Concomitant]
     Active Substance: WARFARIN
  3. TOPIRAMATE. [Concomitant]
     Active Substance: TOPIRAMATE
  4. ADEMPAS [Suspect]
     Active Substance: RIOCIGUAT
     Indication: PULMONARY ARTERIAL HYPERTENSION
     Route: 048
     Dates: start: 201412, end: 201910
  5. LEVETIRACETAM. [Concomitant]
     Active Substance: LEVETIRACETAM
  6. NADOLOL. [Concomitant]
     Active Substance: NADOLOL
  7. AMITRIPTYLLINE [Concomitant]
     Active Substance: AMITRIPTYLINE
  8. LOSARTIN [Concomitant]
     Active Substance: LOSARTAN

REACTIONS (2)
  - Pulmonary hypertension [None]
  - Left ventricular failure [None]

NARRATIVE: CASE EVENT DATE: 20191004
